FAERS Safety Report 9620962 (Version 2)
Quarter: 2013Q4

REPORT INFORMATION
  Report Type: Spontaneous
  Country: DE (occurrence: DE)
  Receive Date: 20131015
  Receipt Date: 20131126
  Transmission Date: 20140711
  Serious: Yes (Other)
  Sender: FDA-Public Use
  Company Number: DE-RANBAXY-2013RR-74082

PATIENT
  Sex: Male

DRUGS (1)
  1. CEFUROX BASICS 500 MG TABLETTEN [Suspect]
     Indication: PRODUCT USED FOR UNKNOWN INDICATION
     Dosage: 1 TABLET, BID
     Route: 065
     Dates: start: 20131001

REACTIONS (2)
  - Convulsion [Unknown]
  - Tremor [Unknown]
